FAERS Safety Report 7302093 (Version 2)
Quarter: 2013Q4

REPORT INFORMATION
  Report Type: Spontaneous
  Country: US (occurrence: None)
  Receive Date: 20100212
  Receipt Date: 20131217
  Transmission Date: 20140711
  Serious: Yes (Death, Hospitalization, Disabling, Other)
  Sender: FDA-Public Use
  Company Number: 2010S1000472

PATIENT
  Age: 73 Year
  Sex: Male

DRUGS (25)
  1. FLEET PHOSPHO-SODA [Suspect]
     Indication: COLONOSCOPY
     Route: 048
  2. PROZAC [Concomitant]
  3. NIACIN [Concomitant]
  4. NOVOLOG [Concomitant]
  5. TESTOSTERONE [Concomitant]
  6. PREVACID [Concomitant]
  7. COUMADIN [Concomitant]
  8. CREON [Concomitant]
  9. ATROVENT [Concomitant]
  10. LANTUS [Concomitant]
  11. REQUIP [Concomitant]
  12. CALAN [Concomitant]
  13. HECTOROL [Concomitant]
  14. SYNTHROID [Concomitant]
  15. FUROSEMIDE [Concomitant]
  16. PHOSLO [Concomitant]
  17. LACTASE [Concomitant]
  18. EPOGEN [Concomitant]
  19. SINGULAIR [Concomitant]
  20. THIAMINE [Concomitant]
  21. SODIUM CARBONATE [Concomitant]
  22. ALLOPURINOL [Concomitant]
  23. CULTURELLE (LACTOBACILLUS NOS) [Concomitant]
  24. VANCOMYCIN HYDROCHLORIDE [Concomitant]
  25. COLCHICINE [Concomitant]

REACTIONS (18)
  - Renal disorder [None]
  - Glomerular filtration rate decreased [None]
  - Blood creatinine increased [None]
  - Renal impairment [None]
  - Renal failure acute [None]
  - Renal failure chronic [None]
  - Fluid overload [None]
  - Haemoglobin decreased [None]
  - International normalised ratio increased [None]
  - Dialysis [None]
  - Unresponsive to stimuli [None]
  - Pulseless electrical activity [None]
  - Cardio-respiratory arrest [None]
  - Pulmonary oedema [None]
  - Left ventricular dysfunction [None]
  - Acute myocardial infarction [None]
  - Arteriosclerosis coronary artery [None]
  - Nephropathy [None]
